FAERS Safety Report 18768990 (Version 2)
Quarter: 2021Q1

REPORT INFORMATION
  Report Type: Spontaneous
  Country: TR (occurrence: TR)
  Receive Date: 20210121
  Receipt Date: 20210209
  Transmission Date: 20210419
  Serious: Yes (Hospitalization)
  Sender: FDA-Public Use
  Company Number: NVSC2021TR008382

PATIENT
  Age: 5 Year

DRUGS (3)
  1. SANDOSTATIN [Suspect]
     Active Substance: OCTREOTIDE ACETATE
  2. SANDOSTATIN [Suspect]
     Active Substance: OCTREOTIDE ACETATE
     Indication: LYMPHOMA
     Dosage: 16 UNK, QD (16 AMPOULE /DAY)
     Route: 065
  3. SANDOSTATIN [Suspect]
     Active Substance: OCTREOTIDE ACETATE

REACTIONS (3)
  - Product use in unapproved indication [Not Recovered/Not Resolved]
  - Haemorrhage [Not Recovered/Not Resolved]
  - Overdose [Not Recovered/Not Resolved]
